FAERS Safety Report 9741135 (Version 8)
Quarter: 2014Q4

REPORT INFORMATION
  Report Type: Report from Study
  Country: BA (occurrence: BA)
  Receive Date: 20131209
  Receipt Date: 20141104
  Transmission Date: 20150529
  Serious: Yes (Death)
  Sender: FDA-Public Use
  Company Number: BA-PFIZER INC-2013348628

PATIENT
  Age: 61 Year
  Sex: Female
  Weight: 81 kg

DRUGS (8)
  1. SALICYLIC ACID. [Concomitant]
     Active Substance: SALICYLIC ACID
     Indication: SKIN PAPILLOMA
     Dosage: UNK, TWICE DAILY
     Route: 061
     Dates: start: 20120514
  2. ENALAPRIL [Concomitant]
     Active Substance: ENALAPRIL
     Indication: HYPERTENSION
     Dosage: 5 MG, 1X/DAY
     Route: 048
     Dates: start: 20120320
  3. PASTA ZINCI [Concomitant]
     Indication: SKIN PAPILLOMA
     Dosage: UNK, TWICE DAILY
     Route: 061
     Dates: start: 20120328
  4. TOFACITINIB CITRATE [Suspect]
     Active Substance: TOFACITINIB CITRATE
     Indication: PSORIASIS
     Dosage: 10 MG, 2X/DAY
     Route: 048
     Dates: start: 20120214, end: 20131028
  5. AMLODIPINE BESILATE [Concomitant]
     Active Substance: AMLODIPINE BESYLATE
     Indication: HYPERTENSION
     Dosage: 5 MG, 1X/DAY
     Route: 048
     Dates: start: 20120629
  6. RANITIDINE [Concomitant]
     Active Substance: RANITIDINE\RANITIDINE HYDROCHLORIDE
     Indication: GASTRITIS
     Dosage: 150 MG, 1X/DAY
     Dates: start: 20120805
  7. VASILIP [Concomitant]
     Indication: DYSLIPIDAEMIA
     Dosage: 10 MG, 1X/DAY
     Route: 048
     Dates: start: 20120313
  8. BROMAZEPAM [Concomitant]
     Active Substance: BROMAZEPAM
     Indication: ANXIETY
     Dosage: 1.5 MG, 1X/DAY
     Route: 048
     Dates: start: 20100101

REACTIONS (1)
  - Subdural haematoma [Fatal]

NARRATIVE: CASE EVENT DATE: 20131127
